FAERS Safety Report 11569722 (Version 1)
Quarter: 2015Q3

REPORT INFORMATION
  Report Type: Spontaneous
  Country: US (occurrence: None)
  Receive Date: 20150928
  Receipt Date: 20150928
  Transmission Date: 20151125
  Serious: Yes (Hospitalization)
  Sender: FDA-Public Use
  Company Number: None

PATIENT
  Age: 48 Year
  Sex: Male
  Weight: 89.4 kg

DRUGS (6)
  1. 5 HOUR ENERGY 2 OZ [Concomitant]
  2. AZITHROMYCIN [Concomitant]
     Active Substance: AZITHROMYCIN ANHYDROUS
  3. PREDNISONE 15 MG [Concomitant]
  4. RUXOLITINIB 5 MG TABS [Suspect]
     Active Substance: RUXOLITINIB
     Indication: CHRONIC MYELOID LEUKAEMIA
     Route: 048
     Dates: start: 20150724, end: 20150924
  5. IBUPROFEN 200 MG [Concomitant]
     Active Substance: IBUPROFEN
  6. CELECOXIB 100 MG CAPSULES (GENERIC FOR CELEBREX 100 MG CAPSULES) [Concomitant]
     Active Substance: CELECOXIB

REACTIONS (11)
  - Productive cough [None]
  - Respiratory symptom [None]
  - Arthralgia [None]
  - Impaired work ability [None]
  - Dyspnoea [None]
  - No therapeutic response [None]
  - Chloroma [None]
  - Cough [None]
  - Joint swelling [None]
  - Wheezing [None]
  - Stridor [None]

NARRATIVE: CASE EVENT DATE: 20150915
